FAERS Safety Report 5901566-2 (Version None)
Quarter: 2008Q3

REPORT INFORMATION
  Report Type: 
  Country: None (occurrence: None)
  Receive Date: 20080926
  Receipt Date: 20080926
  Transmission Date: 20090109
  Serious: No
  Sender: FDA-Public Use
  Company Number: None

PATIENT
  Age: 42 Year
  Sex: Female
  Weight: 89.3586 kg

DRUGS (2)
  1. CREST PRO HEALTH MOUTH RINSE [Suspect]
     Indication: DENTAL DISORDER PROPHYLAXIS
     Dosage: CAPFUL DAILY PO
     Route: 048
     Dates: start: 20080901, end: 20080905
  2. CREST PRO HEALTH MOUTH RINSE [Suspect]
     Indication: DENTAL DISORDER PROPHYLAXIS
     Dosage: CAPFUL DAILY PO
     Route: 048
     Dates: start: 20080916, end: 20080920

REACTIONS (1)
  - DYSGEUSIA [None]
